FAERS Safety Report 18151348 (Version 2)
Quarter: 2020Q4

REPORT INFORMATION
  Report Type: Report from Study
  Country: CA (occurrence: CA)
  Receive Date: 20200814
  Receipt Date: 20201023
  Transmission Date: 20210113
  Serious: Yes (Hospitalization, Other)
  Sender: FDA-Public Use
  Company Number: CA-JNJFOC-20200808555

PATIENT
  Age: 32 Year
  Sex: Female
  Weight: 34.4 kg

DRUGS (2)
  1. STELARA [Suspect]
     Active Substance: USTEKINUMAB
     Indication: CROHN^S DISEASE
     Dosage: ON 05-AUG-2020 THE PATIENT RECEIVED 7 TH 90MG STELARA INJECTION
     Route: 058
     Dates: start: 20180611
  2. STELARA [Suspect]
     Active Substance: USTEKINUMAB

REACTIONS (3)
  - Abdominal pain [Unknown]
  - Hospitalisation [Unknown]
  - Vascular access site infection [Unknown]

NARRATIVE: CASE EVENT DATE: 20200804
